FAERS Safety Report 24130773 (Version 3)
Quarter: 2025Q1

REPORT INFORMATION
  Report Type: Report from Study
  Country: US (occurrence: US)
  Receive Date: 20240724
  Receipt Date: 20250219
  Transmission Date: 20250408
  Serious: Yes (Hospitalization)
  Sender: TAKEDA
  Company Number: US-TAKEDA-2024TUS074343

PATIENT
  Sex: Male

DRUGS (29)
  1. PONATINIB [Suspect]
     Active Substance: PONATINIB
     Indication: Chronic myeloid leukaemia
     Dosage: 45 MILLIGRAM, QD
  2. PONATINIB [Suspect]
     Active Substance: PONATINIB
     Dosage: 45 MILLIGRAM, QD
  3. MAGNESIUM OXIDE [Concomitant]
     Active Substance: MAGNESIUM OXIDE
  4. LEVALBUTEROL [Concomitant]
     Active Substance: LEVALBUTEROL
  5. LABETALOL HYDROCHLORIDE [Concomitant]
     Active Substance: LABETALOL HYDROCHLORIDE
  6. IPRATROPIUM BROMIDE AND ALBUTEROL SULFATE [Concomitant]
     Active Substance: ALBUTEROL SULFATE\IPRATROPIUM BROMIDE
  7. HYDRALAZINE HCL [Concomitant]
     Active Substance: HYDRALAZINE HYDROCHLORIDE
  8. HEPARIN SODIUM [Concomitant]
     Active Substance: HEPARIN SODIUM
  9. LASIX [Concomitant]
     Active Substance: FUROSEMIDE
  10. TRELEGY ELLIPTA [Concomitant]
     Active Substance: FLUTICASONE FUROATE\UMECLIDINIUM BROMIDE\VILANTEROL TRIFENATATE
  11. PEPCID [Concomitant]
     Active Substance: FAMOTIDINE
  12. BENADRYL ALLERGY [Concomitant]
     Active Substance: DIPHENHYDRAMINE HYDROCHLORIDE
  13. ROCEPHIN [Concomitant]
     Active Substance: CEFTRIAXONE SODIUM
  14. CARVEDILOL [Concomitant]
     Active Substance: CARVEDILOL
  15. BUDESONIDE [Concomitant]
     Active Substance: BUDESONIDE
  16. AZITHROMYCIN [Concomitant]
     Active Substance: AZITHROMYCIN
  17. ATORVASTATIN CALCIUM [Concomitant]
     Active Substance: ATORVASTATIN CALCIUM
  18. ALBUTEROL [Concomitant]
     Active Substance: ALBUTEROL
  19. NICARDIPINE HYDROCHLORIDE [Concomitant]
     Active Substance: NICARDIPINE HYDROCHLORIDE
  20. TORSEMIDE [Concomitant]
     Active Substance: TORSEMIDE
  21. TAMSULOSIN HYDROCHLORIDE [Concomitant]
     Active Substance: TAMSULOSIN HYDROCHLORIDE
  22. TACROLIMUS [Concomitant]
     Active Substance: TACROLIMUS
  23. SODIUM BICARBONATE [Concomitant]
     Active Substance: SODIUM BICARBONATE
  24. SILDENAFIL [Concomitant]
     Active Substance: SILDENAFIL
  25. YUPELRI [Concomitant]
     Active Substance: REVEFENACIN
  26. PREDNISONE [Concomitant]
     Active Substance: PREDNISONE
  27. VELTASSA [Concomitant]
     Active Substance: PATIROMER
  28. BOSULIF [Concomitant]
     Active Substance: BOSUTINIB MONOHYDRATE
  29. NIFEDIPINE [Concomitant]
     Active Substance: NIFEDIPINE

REACTIONS (6)
  - Chronic obstructive pulmonary disease [Unknown]
  - Cardiac disorder [Unknown]
  - Renal disorder [Unknown]
  - Irritable bowel syndrome [Unknown]
  - Constipation [Unknown]
  - Weight increased [Unknown]
